FAERS Safety Report 5663341-6 (Version None)
Quarter: 2008Q1

REPORT INFORMATION
  Report Type: 
  Country: None (occurrence: None)
  Receive Date: 20080313
  Receipt Date: 20080306
  Transmission Date: 20080703
  Serious: Yes (Hospitalization)
  Sender: FDA-Public Use
  Company Number: US-ELI_LILLY_AND_COMPANY-US200803001892

PATIENT
  Sex: Female
  Weight: 88.889 kg

DRUGS (2)
  1. BYETTA [Suspect]
     Dosage: 5 UG, 2/D
     Route: 058
     Dates: start: 20070301, end: 20070401
  2. BYETTA [Suspect]
     Dosage: 10 UG, 2/D
     Route: 058
     Dates: start: 20070401

REACTIONS (6)
  - ALOPECIA [None]
  - ARTHROPATHY [None]
  - BLADDER DISORDER [None]
  - DECREASED APPETITE [None]
  - PROCEDURAL PAIN [None]
  - WEIGHT DECREASED [None]
